FAERS Safety Report 23534571 (Version 1)
Quarter: 2024Q1

REPORT INFORMATION
  Report Type: Spontaneous
  Country: CA (occurrence: CA)
  Receive Date: 20240217
  Receipt Date: 20240217
  Transmission Date: 20240410
  Serious: Yes (Other)
  Sender: FDA-Public Use
  Company Number: CA-CELLTRION INC.-2024CA003962

PATIENT

DRUGS (2)
  1. INFLIXIMAB [Suspect]
     Active Substance: INFLIXIMAB
     Indication: Crohn^s disease
     Dosage: 60 MG, 1X/DAY
     Route: 042
  2. XARELTO [Suspect]
     Active Substance: RIVAROXABAN

REACTIONS (4)
  - Gastrointestinal inflammation [Unknown]
  - Haematochezia [Unknown]
  - Intestinal haemorrhage [Unknown]
  - Polypectomy [Unknown]
